FAERS Safety Report 6337430-7 (Version None)
Quarter: 2009Q3

REPORT INFORMATION
  Report Type: 
  Country: None (occurrence: None)
  Receive Date: 20090902
  Receipt Date: 20090821
  Transmission Date: 20100115
  Serious: Yes (Other)
  Sender: FDA-Public Use
  Company Number: FR-JNJFOC-20090809270

PATIENT
  Age: 22 Year
  Sex: Female

DRUGS (4)
  1. RISPERDAL CONSTA [Suspect]
     Indication: DRUG USE FOR UNKNOWN INDICATION
     Route: 030
  2. DEPAKOTE [Concomitant]
     Route: 065
  3. LEPTICUR [Concomitant]
     Route: 065
  4. CONTRACEPTIVE [Concomitant]
     Route: 065

REACTIONS (5)
  - AMENORRHOEA [None]
  - ASTHMA [None]
  - GALACTORRHOEA [None]
  - OEDEMA [None]
  - WEIGHT INCREASED [None]
